FAERS Safety Report 9772067 (Version 2)
Quarter: 2014Q1

REPORT INFORMATION
  Report Type: Spontaneous
  Country: IT (occurrence: IT)
  Receive Date: 20131219
  Receipt Date: 20140121
  Transmission Date: 20141002
  Serious: Yes (Life-Threatening, Other)
  Sender: FDA-Public Use
  Company Number: IT-JNJFOC-20131204059

PATIENT
  Age: 17 Year
  Sex: Female
  Weight: 59 kg

DRUGS (4)
  1. DUROGESIC [Suspect]
     Indication: ENCEPHALOPATHY
     Route: 062
     Dates: start: 20131109
  2. DUROGESIC [Suspect]
     Indication: ENCEPHALOPATHY
     Route: 062
     Dates: start: 20130101, end: 20131109
  3. DEPAKIN [Concomitant]
     Indication: EPILEPSY
  4. RIVOTRIL [Concomitant]
     Indication: PRODUCT USED FOR UNKNOWN INDICATION

REACTIONS (4)
  - Respiratory depression [Recovered/Resolved]
  - Overdose [Unknown]
  - Inappropriate schedule of drug administration [Unknown]
  - Off label use [Unknown]
